FAERS Safety Report 12937676 (Version 2)
Quarter: 2016Q4

REPORT INFORMATION
  Report Type: Spontaneous
  Country: GB (occurrence: GB)
  Receive Date: 20161114
  Receipt Date: 20161121
  Transmission Date: 20170207
  Serious: Yes (Other)
  Sender: FDA-Public Use
  Company Number: GB-SA-2016SA200658

PATIENT
  Age: 66 Year
  Sex: Female

DRUGS (6)
  1. SEVELAMER CARBONATE. [Suspect]
     Active Substance: SEVELAMER CARBONATE
     Indication: DIALYSIS
     Route: 048
     Dates: start: 20161029
  2. SEVELAMER CARBONATE. [Suspect]
     Active Substance: SEVELAMER CARBONATE
     Indication: BLOOD PHOSPHORUS INCREASED
     Route: 048
     Dates: start: 20161029
  3. VANCOMYCIN [Concomitant]
     Active Substance: VANCOMYCIN
     Indication: HAEMODIALYSIS
  4. PRASUGREL [Concomitant]
     Active Substance: PRASUGREL
  5. ISOPHANE INSULIN [Concomitant]
     Active Substance: INSULIN NOS
  6. LEVOTHYROXINE. [Concomitant]
     Active Substance: LEVOTHYROXINE

REACTIONS (8)
  - Pain in extremity [Unknown]
  - Balance disorder [Recovering/Resolving]
  - Hypoacusis [Recovering/Resolving]
  - Asthenia [Unknown]
  - Constipation [Unknown]
  - Fall [Unknown]
  - Pain in extremity [Unknown]
  - Vision blurred [Recovering/Resolving]

NARRATIVE: CASE EVENT DATE: 2016
